FAERS Safety Report 24565104 (Version 2)
Quarter: 2024Q4

REPORT INFORMATION
  Report Type: Spontaneous
  Country: US (occurrence: US)
  Receive Date: 20241030
  Receipt Date: 20241104
  Transmission Date: 20250114
  Serious: Yes (Hospitalization, Other)
  Sender: PFIZER
  Company Number: US-MLMSERVICE-20241018-PI227601-00171-4

PATIENT
  Age: 55 Year
  Sex: Female

DRUGS (8)
  1. DEXTROSE [Suspect]
     Active Substance: DEXTROSE MONOHYDRATE
     Indication: Haemorrhage
     Dosage: MAINTENANCE NORMAL SALINE W/ DEXTROSE 5% IV FLUIDS DURING HER 1ST DAYS OF HOSPITALIZATION
     Route: 042
  2. DEXTROSE [Suspect]
     Active Substance: DEXTROSE MONOHYDRATE
     Indication: Vomiting
  3. DEXTROSE [Suspect]
     Active Substance: DEXTROSE MONOHYDRATE
     Indication: Nausea
  4. SODIUM CHLORIDE [Concomitant]
     Active Substance: SODIUM CHLORIDE
     Indication: Vehicle solution use
     Dosage: MAINTENANCE NORMAL SALINE W/ DEXTROSE 5% IV FLUIDS DURING HER 1ST DAYS OF HOSPITALIZATION
     Route: 042
  5. VALPROIC ACID [Concomitant]
     Active Substance: VALPROIC ACID
     Indication: Epilepsy
     Dosage: UNK
  6. LAMOTRIGINE [Concomitant]
     Active Substance: LAMOTRIGINE
     Indication: Epilepsy
     Dosage: UNK
  7. LEVETIRACETAM [Concomitant]
     Active Substance: LEVETIRACETAM
     Indication: Epilepsy
     Dosage: UNK
  8. OXYCODONE [Concomitant]
     Active Substance: OXYCODONE
     Dosage: UNK

REACTIONS (1)
  - Wernicke^s encephalopathy [Recovering/Resolving]
